FAERS Safety Report 9903789 (Version 1)
Quarter: 2014Q1

REPORT INFORMATION
  Report Type: Spontaneous
  Country: US (occurrence: US)
  Receive Date: 20140218
  Receipt Date: 20140218
  Transmission Date: 20141002
  Serious: Yes (Hospitalization, Other)
  Sender: FDA-Public Use
  Company Number: US-ROCHE-1348183

PATIENT
  Age: 3 Year
  Sex: Male

DRUGS (1)
  1. TAMIFLU [Suspect]
     Indication: INFLUENZA
     Route: 048
     Dates: start: 20140207

REACTIONS (5)
  - Confusional state [Recovered/Resolved]
  - Abasia [Recovered/Resolved]
  - Dysarthria [Recovered/Resolved]
  - Excessive eye blinking [Recovered/Resolved]
  - Pain in extremity [Recovered/Resolved]
